FAERS Safety Report 10170257 (Version 1)
Quarter: 2014Q2

REPORT INFORMATION
  Report Type: Spontaneous
  Country: DE (occurrence: DE)
  Receive Date: 20140513
  Receipt Date: 20140513
  Transmission Date: 20141212
  Serious: Yes (Other)
  Sender: FDA-Public Use
  Company Number: DE-MYLANLABS-2014S1009990

PATIENT
  Age: 1 Day
  Sex: Female
  Weight: 2.32 kg

DRUGS (3)
  1. BISOPROLOL [Suspect]
     Indication: HYPERTENSION
     Dosage: 5 [MG/D ]
     Route: 064
     Dates: start: 20121203, end: 20130909
  2. L-THYROXIN [Concomitant]
     Indication: HYPOTHYROIDISM
     Dosage: 75 [?G/D ]
     Route: 064
     Dates: start: 20121203, end: 20130909
  3. FOLIO /06866801/ [Concomitant]
     Indication: PROPHYLAXIS OF NEURAL TUBE DEFECT
     Dosage: 0.4 [MG/D ]
     Route: 064
     Dates: start: 20121203, end: 20130909

REACTIONS (2)
  - Small for dates baby [Unknown]
  - Exposure during pregnancy [Recovered/Resolved]
